FAERS Safety Report 8740857 (Version 2)
Quarter: 2013Q4

REPORT INFORMATION
  Report Type: Report from Study
  Country: JP (occurrence: JP)
  Receive Date: 20120823
  Receipt Date: 20131107
  Transmission Date: 20140711
  Serious: Yes (Hospitalization, Other)
  Sender: FDA-Public Use
  Company Number: JP-009507513-1207JPN000057

PATIENT
  Age: 56 Year
  Sex: Male
  Weight: 71 kg

DRUGS (10)
  1. PEGINTRON [Suspect]
     Indication: HEPATITIS C
     Dosage: 1.5MCG/KG/WEEK
     Route: 058
     Dates: start: 20120209, end: 20120222
  2. REBETOL [Suspect]
     Indication: HEPATITIS C
     Route: 048
     Dates: start: 20120209, end: 20120222
  3. TELAVIC [Suspect]
     Indication: HEPATITIS C
     Dosage: 2250 MG, ONCE
     Route: 048
     Dates: start: 20120209, end: 20120216
  4. TELAVIC [Suspect]
     Dosage: 1500 MG, ONCE
     Route: 048
     Dates: start: 20120217, end: 20120222
  5. NORVASC [Concomitant]
     Indication: HYPERTENSION
     Route: 048
     Dates: end: 20120222
  6. NU-LOTAN [Concomitant]
     Indication: HYPERTENSION
     Route: 048
     Dates: end: 20120222
  7. LASIX (FUROSEMIDE SODIUM) [Concomitant]
     Indication: PROPHYLAXIS
     Route: 048
     Dates: end: 20120222
  8. ALDACTONE A [Concomitant]
     Indication: PROPHYLAXIS
     Route: 048
     Dates: end: 20120222
  9. AMARYL [Concomitant]
     Indication: DIABETES MELLITUS
     Route: 048
     Dates: end: 20120222
  10. NOVORAPID [Concomitant]
     Indication: DIABETES MELLITUS
     Dosage: 10 UNITS/MORNING,4 UNITS/NOON,6 UNITS/EVENING
     Route: 058
     Dates: end: 20120222

REACTIONS (3)
  - Cardiac arrest [Recovered/Resolved]
  - Hyperkalaemia [Recovered/Resolved]
  - Renal disorder [Recovered/Resolved]
